FAERS Safety Report 19981577 (Version 5)
Quarter: 2021Q4

REPORT INFORMATION
  Report Type: Report from Study
  Country: US (occurrence: US)
  Receive Date: 20211022
  Receipt Date: 20211215
  Transmission Date: 20220303
  Serious: No
  Sender: FDA-Public Use
  Company Number: US-NOVARTISTESTPH-NVSC2021US239022

PATIENT
  Age: 4 Year
  Sex: Female

DRUGS (2)
  1. ILARIS [Suspect]
     Active Substance: CANAKINUMAB
     Indication: Pyrexia
     Dosage: 30 MG, QMO
     Route: 058
     Dates: start: 20210813
  2. ILARIS [Suspect]
     Active Substance: CANAKINUMAB
     Dosage: 30 MG, (FOR EVERY 4 WEEKS)
     Route: 058
     Dates: start: 20210813

REACTIONS (4)
  - Vomiting [Unknown]
  - Diarrhoea [Recovering/Resolving]
  - Nasopharyngitis [Recovered/Resolved]
  - Gastroenteritis viral [Recovered/Resolved]

NARRATIVE: CASE EVENT DATE: 20211204
